FAERS Safety Report 23679871 (Version 1)
Quarter: 2024Q1

REPORT INFORMATION
  Report Type: Spontaneous
  Country: CH (occurrence: CH)
  Receive Date: 20240327
  Receipt Date: 20240327
  Transmission Date: 20240410
  Serious: Yes (Other)
  Sender: FDA-Public Use
  Company Number: CH-009507513-2403CHE007934

PATIENT
  Age: 40 Year
  Sex: Female
  Weight: 76 kg

DRUGS (29)
  1. EMEND [Suspect]
     Active Substance: APREPITANT
     Indication: Prophylaxis of nausea and vomiting
     Dosage: 125 MG, UNK
     Route: 048
     Dates: start: 20160729
  2. EMEND [Suspect]
     Active Substance: APREPITANT
     Dosage: 80 MG, UNK
     Route: 048
     Dates: start: 20160730
  3. NEUPOGEN [Suspect]
     Active Substance: FILGRASTIM
     Indication: Agranulocytosis
     Dosage: 30 MILLION IU (1 SINGLE INJECTION)
     Route: 040
     Dates: start: 201608, end: 201608
  4. DOXORUBICIN [Suspect]
     Active Substance: DOXORUBICIN
     Indication: Hodgkin^s disease nodular sclerosis
     Dosage: 25 MG/M2, CYCLE 1 (I.E. 45 MG)
     Route: 040
     Dates: start: 20160729, end: 20160812
  5. DOXORUBICIN [Suspect]
     Active Substance: DOXORUBICIN
     Dosage: 25 MG/M2, CYCLE 2 (I.E. 45 MG)
     Route: 040
     Dates: start: 20160826, end: 20160909
  6. DOXORUBICIN [Suspect]
     Active Substance: DOXORUBICIN
     Dosage: 25 MG/M2, CYCLE 3 (I.E. 45 MG)
     Route: 040
     Dates: start: 20160923, end: 20161017
  7. DOXORUBICIN [Suspect]
     Active Substance: DOXORUBICIN
     Dosage: 25 MG/M2, CYCLE 4
     Route: 040
     Dates: start: 20161216, end: 20170106
  8. BLEOMYCIN [Suspect]
     Active Substance: BLEOMYCIN SULFATE
     Indication: Hodgkin^s disease nodular sclerosis
     Dosage: 10000 IU/M2, CYCLE 1 (I.E. 18,000 UNITS)
     Route: 040
     Dates: start: 20160729, end: 20160812
  9. BLEOMYCIN [Suspect]
     Active Substance: BLEOMYCIN SULFATE
     Dosage: 10000 IU/M2, (CYCLE 2) (I.E. 18,000 UNITS)
     Route: 040
     Dates: start: 20160826, end: 20160909
  10. BLEOMYCIN [Suspect]
     Active Substance: BLEOMYCIN SULFATE
     Dosage: 10000 IU/M2, (CYCLE 3) (I.E. 18,000 UNITS)
     Route: 040
     Dates: start: 20160923, end: 20161017
  11. BLEOMYCIN [Suspect]
     Active Substance: BLEOMYCIN SULFATE
     Dosage: 10000 IU/M2, (CYCLE 4)
     Route: 040
     Dates: start: 20161216, end: 20170106
  12. VINBLASTINE SULFATE [Suspect]
     Active Substance: VINBLASTINE SULFATE
     Indication: Hodgkin^s disease nodular sclerosis
     Dosage: 6 MG/M2  (CYCLE 1)
     Route: 040
     Dates: start: 20160729, end: 20160812
  13. VINBLASTINE SULFATE [Suspect]
     Active Substance: VINBLASTINE SULFATE
     Dosage: 6 MG/M2  (CYCLE 2)
     Route: 040
     Dates: start: 20160826, end: 20160909
  14. VINBLASTINE SULFATE [Suspect]
     Active Substance: VINBLASTINE SULFATE
     Dosage: 6 MG/M2  (CYCLE 3)
     Route: 040
     Dates: start: 20160923, end: 20161017
  15. VINBLASTINE SULFATE [Suspect]
     Active Substance: VINBLASTINE SULFATE
     Dosage: 6 MG/M2  (CYCLE 4)
     Route: 040
     Dates: start: 20161216, end: 20170106
  16. DACARBAZINE [Suspect]
     Active Substance: DACARBAZINE
     Indication: Hodgkin^s disease nodular sclerosis
     Dosage: 375 MG/M2,  (CYCLE 1) (I.E. 680 MG)
     Route: 040
     Dates: start: 20160729, end: 20160812
  17. DACARBAZINE [Suspect]
     Active Substance: DACARBAZINE
     Dosage: 375 MG/M2,  (CYCLE 2) (I.E. 680 MG)
     Route: 040
     Dates: start: 20160826, end: 20160909
  18. DACARBAZINE [Suspect]
     Active Substance: DACARBAZINE
     Dosage: 375 MG/M2,  (CYCLE 3) (I.E. 680 MG)
     Route: 040
     Dates: start: 20160923, end: 20160923
  19. DACARBAZINE [Suspect]
     Active Substance: DACARBAZINE
     Dosage: 375 MG/M2,  (CYCLE 4)
     Route: 040
     Dates: start: 20161216, end: 20170106
  20. ZOFRAN [Suspect]
     Active Substance: ONDANSETRON HYDROCHLORIDE
     Indication: Prophylaxis of nausea and vomiting
     Dosage: 8 MG (CYCLE 1), (CONC: 8 MG/4 ML)
     Route: 040
     Dates: start: 20160729, end: 20160812
  21. ZOFRAN [Suspect]
     Active Substance: ONDANSETRON HYDROCHLORIDE
     Dosage: 8 MG, CYCLE 2 (CONC: 8 MG/4 ML)
     Route: 040
     Dates: start: 20160826, end: 20160909
  22. ZOFRAN [Suspect]
     Active Substance: ONDANSETRON HYDROCHLORIDE
     Dosage: 8 MG, CYCLE 3 (CONC: 8 MG/4 ML)
     Route: 040
     Dates: start: 20160923, end: 20161017
  23. SOLU-MEDROL [Suspect]
     Active Substance: METHYLPREDNISOLONE SODIUM SUCCINATE
     Indication: Prophylaxis of nausea and vomiting
     Dosage: 125 MG (CYCLE 1), UNK
     Route: 040
     Dates: start: 20160729, end: 20160812
  24. SOLU-MEDROL [Suspect]
     Active Substance: METHYLPREDNISOLONE SODIUM SUCCINATE
     Dosage: 125 MG (CYCLE 2), UNK
     Route: 040
     Dates: start: 20160826, end: 20160909
  25. SOLU-MEDROL [Suspect]
     Active Substance: METHYLPREDNISOLONE SODIUM SUCCINATE
     Dosage: 125 MG (CYCLE 3), UNK
     Route: 040
     Dates: start: 20160923, end: 20161017
  26. EUTHYROX [Concomitant]
     Active Substance: LEVOTHYROXINE SODIUM
     Indication: Hypothyroidism
     Dosage: 25 MICROGRAM, QD
     Route: 048
     Dates: start: 20160624
  27. FOLIC ACID [Concomitant]
     Active Substance: FOLIC ACID
     Indication: Anaemia prophylaxis
     Dosage: 5 MG, QD
     Route: 048
     Dates: start: 201609, end: 201611
  28. CYANOCOBALAMIN [Concomitant]
     Active Substance: CYANOCOBALAMIN
     Indication: Anaemia prophylaxis
     Dosage: UNK
     Route: 045
     Dates: start: 201609, end: 201611
  29. FISH OIL\MINERALS\VITAMINS [Concomitant]
     Active Substance: FISH OIL\MINERALS\VITAMINS
     Dosage: UNK
     Route: 048
     Dates: start: 2016, end: 2016

REACTIONS (10)
  - Caesarean section [Unknown]
  - Premature separation of placenta [Unknown]
  - Placenta praevia [Unknown]
  - Placenta praevia haemorrhage [Unknown]
  - Foetal vascular malperfusion [Unknown]
  - Neutropenia [Unknown]
  - Small size placenta [Unknown]
  - Placental disorder [Unknown]
  - Umbilical cord abnormality [Unknown]
  - Maternal exposure during pregnancy [Recovered/Resolved]

NARRATIVE: CASE EVENT DATE: 20160101
